FAERS Safety Report 5381891-7 (Version None)
Quarter: 2007Q3

REPORT INFORMATION
  Report Type: 
  Country: None (occurrence: None)
  Receive Date: 20070709
  Receipt Date: 20070611
  Transmission Date: 20080115
  Serious: Yes (Hospitalization)
  Sender: FDA-Public Use
  Company Number: JP-ASTRAZENECA-2007AP02416

PATIENT
  Age: 19122 Day
  Sex: Female
  Weight: 51 kg

DRUGS (4)
  1. IRESSA [Suspect]
     Indication: LUNG NEOPLASM MALIGNANT
     Route: 048
     Dates: start: 20070328, end: 20070420
  2. IRESSA [Suspect]
     Route: 048
     Dates: start: 20070421, end: 20070423
  3. EXCEGRAN [Concomitant]
     Indication: LUNG NEOPLASM MALIGNANT
     Route: 048
     Dates: start: 20061001, end: 20070423
  4. EXCEGRAN [Concomitant]
     Indication: METASTASES TO CENTRAL NERVOUS SYSTEM
     Route: 048
     Dates: start: 20061001, end: 20070423

REACTIONS (1)
  - LIVER DISORDER [None]
